FAERS Safety Report 5099816-0 (Version None)
Quarter: 2006Q4

REPORT INFORMATION
  Report Type: 
  Country: None (occurrence: None)
  Receive Date: 20060906
  Receipt Date: 20060830
  Transmission Date: 20070319
  Serious: Yes (Hospitalization)
  Sender: FDA-Public Use
  Company Number: IBF20060009

PATIENT
  Age: 51 Year
  Sex: Male

DRUGS (3)
  1. IBUPROFEN [Suspect]
     Indication: PHARYNGITIS
     Dosage: PO
     Route: 048
     Dates: start: 20030201, end: 20030201
  2. LOXOPROFEN [Suspect]
     Indication: PHARYNGITIS
     Dosage: PO
     Route: 048
     Dates: start: 20030201, end: 20030201
  3. CEFCAPENE [Suspect]
     Indication: PHARYNGITIS
     Dates: start: 20030201, end: 20030201

REACTIONS (13)
  - ANAEMIA HAEMOLYTIC AUTOIMMUNE [None]
  - BLOOD LACTATE DEHYDROGENASE INCREASED [None]
  - BONE MARROW FAILURE [None]
  - COLD AGGLUTININS POSITIVE [None]
  - COOMBS TEST POSITIVE [None]
  - GLOMERULAR FILTRATION RATE DECREASED [None]
  - HAEMODIALYSIS [None]
  - HAEMOLYSIS [None]
  - KIDNEY INFECTION [None]
  - OEDEMA PERIPHERAL [None]
  - PHARYNGITIS [None]
  - RENAL FAILURE ACUTE [None]
  - RENAL TUBULAR NECROSIS [None]
